FAERS Safety Report 4903739-4 (Version None)
Quarter: 2006Q1

REPORT INFORMATION
  Report Type: 
  Country: None (occurrence: None)
  Receive Date: 20060208
  Receipt Date: 20060202
  Transmission Date: 20060701
  Serious: Yes (Hospitalization)
  Sender: FDA-Public Use
  Company Number: US-AMGEN-US167447

PATIENT
  Sex: Male

DRUGS (6)
  1. ARANESP [Suspect]
     Indication: RENAL FAILURE CHRONIC
     Dates: start: 20030101
  2. AMBIEN [Concomitant]
  3. HYDRALAZINE HYDROCHLORIDE [Concomitant]
  4. ISOPTIN [Concomitant]
  5. PAXIL [Concomitant]
  6. NORVASC [Concomitant]

REACTIONS (5)
  - ANAEMIA [None]
  - ANOREXIA [None]
  - CYSTITIS [None]
  - TREATMENT NONCOMPLIANCE [None]
  - WEIGHT DECREASED [None]
